FAERS Safety Report 15980465 (Version 1)
Quarter: 2019Q1

REPORT INFORMATION
  Report Type: Spontaneous
  Country: CN (occurrence: CN)
  Receive Date: 20190219
  Receipt Date: 20190219
  Transmission Date: 20190418
  Serious: Yes (Other)
  Sender: FDA-Public Use
  Company Number: CN-ABBVIE-19P-035-2641830-00

PATIENT
  Age: 41 Year
  Sex: Female
  Weight: 48 kg

DRUGS (5)
  1. KLACID [Suspect]
     Active Substance: CLARITHROMYCIN
     Indication: HELICOBACTER INFECTION
     Route: 048
     Dates: start: 20181227, end: 20181227
  2. ESOMEPRAZOLE. [Suspect]
     Active Substance: ESOMEPRAZOLE MAGNESIUM
     Indication: HELICOBACTER INFECTION
     Dosage: LAIMEISHU(ESOMEPRAZOLE ENTERICCOATED CAPSULES); DAILY DOSE: 40 MG
     Route: 048
     Dates: start: 20181227, end: 20181227
  3. BISMUTH POTASSIUM CITRATE-CLARITHROMYCIN-TRINIDAZOLE [Suspect]
     Active Substance: BISMUTH SUBCITRATE POTASSIUM\CLARITHROMYCIN\TINIDAZOLE
     Indication: HELICOBACTER INFECTION
     Dosage: DOSAGE: 2.0 DOSAGE UNIT TWICE DAILY: TABLET;LIVZON DELE(BISMUTH POTASSIUM CITRATE TABLETS)
     Route: 048
     Dates: start: 20181227, end: 20181227
  4. TINIDAZOLE. [Suspect]
     Active Substance: TINIDAZOLE
     Indication: HELICOBACTER INFECTION
     Dosage: DOSAGE:1.0 DOSAGE UNIT: TABLET TWICE DAILY; KAIFUXIN(TINIDAZOLE)
     Route: 048
     Dates: start: 20181227, end: 20181227
  5. CLARICIN [Suspect]
     Active Substance: CLARITHROMYCIN
     Indication: HELICOBACTER INFECTION
     Dosage: DOSAGE: 1.0 DOSAGE UNIT: TABLET TWICE DAILY
     Route: 048
     Dates: start: 20181227, end: 20181227

REACTIONS (8)
  - Nausea [Recovered/Resolved]
  - Chills [Recovered/Resolved]
  - Monoparesis [Recovered/Resolved]
  - Vomiting [Recovered/Resolved]
  - Rash [Recovered/Resolved]
  - Dizziness [Recovered/Resolved]
  - Abdominal distension [None]
  - Flatulence [Recovered/Resolved]

NARRATIVE: CASE EVENT DATE: 20181227
